FAERS Safety Report 15152920 (Version 4)
Quarter: 2018Q3

REPORT INFORMATION
  Report Type: Spontaneous
  Country: BR (occurrence: BR)
  Receive Date: 20180717
  Receipt Date: 20180928
  Transmission Date: 20181010
  Serious: Yes (Death, Hospitalization)
  Sender: FDA-Public Use
  Company Number: BR-CELLTRION INC.-2018BR021251

PATIENT

DRUGS (4)
  1. REMSIMA [Suspect]
     Active Substance: INFLIXIMAB
     Dosage: 3 FLASKS OF 100 MG IN 250 ML OF SALINE SOLUTION,, THE INTERVAL BETWEEN THE APPLICATIONS WERE 2 MONTH
     Route: 065
     Dates: start: 20180509, end: 20180509
  2. REMSIMA [Suspect]
     Active Substance: INFLIXIMAB
     Indication: COLITIS
     Dosage: 3 FLASKS OF 100 MG IN 250 ML OF SALINE SOLUTION,, THE INTERVAL BETWEEN THE APPLICATIONS WERE 2 MONTH
     Route: 065
     Dates: start: 201803, end: 201803
  3. REMSIMA [Suspect]
     Active Substance: INFLIXIMAB
     Dosage: 3 FLASKS OF 100 MG IN 250 ML OF SALINE SOLUTION,, THE INTERVAL BETWEEN THE APPLICATIONS WERE 2 MONTH
     Route: 065
  4. REMSIMA [Suspect]
     Active Substance: INFLIXIMAB
     Dosage: 3 FLASKS OF 100 MG IN 250 ML OF SALINE SOLUTION,, THE INTERVAL BETWEEN THE APPLICATIONS WERE 2 MONTH
     Route: 065

REACTIONS (3)
  - Acute abdomen [Fatal]
  - Colitis [Fatal]
  - Septic shock [Fatal]
